FAERS Safety Report 5429531-2 (Version None)
Quarter: 2007Q3

REPORT INFORMATION
  Report Type: 
  Country: None (occurrence: None)
  Receive Date: 20070829
  Receipt Date: 20061025
  Transmission Date: 20080115
  Serious: No
  Sender: FDA-Public Use
  Company Number: A0624890A

PATIENT
  Sex: Female

DRUGS (6)
  1. BECONASE [Suspect]
     Route: 045
     Dates: start: 20061006, end: 20061024
  2. XANAX [Concomitant]
  3. CHLORTHALIDONE [Concomitant]
  4. PROTONIX [Concomitant]
  5. VITAMIN [Concomitant]
  6. ASPIRIN [Concomitant]

REACTIONS (2)
  - EPISTAXIS [None]
  - NASAL DRYNESS [None]
